FAERS Safety Report 13409435 (Version 2)
Quarter: 2017Q4

REPORT INFORMATION
  Report Type: Spontaneous
  Country: US (occurrence: US)
  Receive Date: 20170406
  Receipt Date: 20171123
  Transmission Date: 20180320
  Serious: No
  Sender: FDA-Public Use
  Company Number: US-JNJFOC-20170124708

PATIENT
  Age: 15 Year
  Sex: Male

DRUGS (20)
  1. RISPERDAL [Suspect]
     Active Substance: RISPERIDONE
     Indication: OPPOSITIONAL DEFIANT DISORDER
     Route: 048
     Dates: start: 20050207, end: 20060727
  2. RISPERDAL [Suspect]
     Active Substance: RISPERIDONE
     Indication: AFFECTIVE DISORDER
     Dosage: 2 MG AND 3 MG
     Route: 048
     Dates: start: 20040510, end: 20041015
  3. RISPERDAL [Suspect]
     Active Substance: RISPERIDONE
     Indication: ANXIETY DISORDER
     Dosage: 2 MG AND 3 MG
     Route: 048
     Dates: start: 20040510, end: 20041015
  4. RISPERDAL [Suspect]
     Active Substance: RISPERIDONE
     Indication: BIPOLAR DISORDER
     Route: 048
     Dates: start: 20080422, end: 20130311
  5. RISPERDAL [Suspect]
     Active Substance: RISPERIDONE
     Indication: BIPOLAR DISORDER
     Route: 048
     Dates: start: 20050207, end: 20060727
  6. RISPERDAL [Suspect]
     Active Substance: RISPERIDONE
     Indication: OPPOSITIONAL DEFIANT DISORDER
     Route: 048
     Dates: start: 20080422, end: 20130311
  7. RISPERDAL [Suspect]
     Active Substance: RISPERIDONE
     Indication: ANXIETY DISORDER
     Route: 048
     Dates: start: 20080422, end: 20130311
  8. RISPERIDONE. [Suspect]
     Active Substance: RISPERIDONE
     Indication: OPPOSITIONAL DEFIANT DISORDER
     Route: 048
     Dates: start: 20091002, end: 20130311
  9. RISPERDAL [Suspect]
     Active Substance: RISPERIDONE
     Indication: AFFECTIVE DISORDER
     Route: 048
     Dates: start: 20050207, end: 20060727
  10. RISPERDAL [Suspect]
     Active Substance: RISPERIDONE
     Indication: BIPOLAR DISORDER
     Dosage: 2 MG AND 3 MG
     Route: 048
     Dates: start: 20040510, end: 20041015
  11. RISPERDAL [Suspect]
     Active Substance: RISPERIDONE
     Indication: PSYCHOTIC DISORDER
     Dosage: 2 MG AND 3 MG
     Route: 048
     Dates: start: 20040510, end: 20041015
  12. RISPERDAL [Suspect]
     Active Substance: RISPERIDONE
     Indication: PSYCHOTIC DISORDER
     Route: 048
     Dates: start: 20050207, end: 20060727
  13. RISPERDAL [Suspect]
     Active Substance: RISPERIDONE
     Indication: OPPOSITIONAL DEFIANT DISORDER
     Dosage: 2 MG AND 3 MG
     Route: 048
     Dates: start: 20040510, end: 20041015
  14. RISPERDAL [Suspect]
     Active Substance: RISPERIDONE
     Indication: ANXIETY DISORDER
     Route: 048
     Dates: start: 20050207, end: 20060727
  15. RISPERIDONE. [Suspect]
     Active Substance: RISPERIDONE
     Indication: BIPOLAR DISORDER
     Route: 048
     Dates: start: 20091002, end: 20130311
  16. RISPERIDONE. [Suspect]
     Active Substance: RISPERIDONE
     Indication: PSYCHOTIC DISORDER
     Route: 048
     Dates: start: 20091002, end: 20130311
  17. RISPERDAL [Suspect]
     Active Substance: RISPERIDONE
     Indication: PSYCHOTIC DISORDER
     Route: 048
     Dates: start: 20080422, end: 20130311
  18. RISPERIDONE. [Suspect]
     Active Substance: RISPERIDONE
     Indication: ANXIETY DISORDER
     Route: 048
     Dates: start: 20091002, end: 20130311
  19. RISPERDAL [Suspect]
     Active Substance: RISPERIDONE
     Indication: AFFECTIVE DISORDER
     Route: 048
     Dates: start: 20080422, end: 20130311
  20. RISPERIDONE. [Suspect]
     Active Substance: RISPERIDONE
     Indication: AFFECTIVE DISORDER
     Route: 048
     Dates: start: 20091002, end: 20130311

REACTIONS (3)
  - Gynaecomastia [Unknown]
  - Emotional disorder [Unknown]
  - Obesity [Unknown]

NARRATIVE: CASE EVENT DATE: 20110308
